FAERS Safety Report 9376297 (Version 1)
Quarter: 2013Q3

REPORT INFORMATION
  Report Type: Report from Study
  Country: US (occurrence: US)
  Receive Date: 20130701
  Receipt Date: 20130701
  Transmission Date: 20140515
  Serious: No
  Sender: FDA-Public Use
  Company Number: US-009507513-1306USA012756

PATIENT
  Sex: Female
  Weight: 45.81 kg

DRUGS (1)
  1. IMPLANON [Suspect]
     Dosage: 1 DF, UNK
     Route: 059
     Dates: start: 20110623, end: 20130625

REACTIONS (2)
  - Menstruation irregular [Unknown]
  - Medical device removal [Unknown]
